FAERS Safety Report 17675866 (Version 4)
Quarter: 2020Q2

REPORT INFORMATION
  Report Type: Report from Study
  Country: None (occurrence: US)
  Receive Date: 20200416
  Receipt Date: 20200614
  Transmission Date: 20200714
  Serious: Yes (Other)
  Sender: FDA-Public Use
  Company Number: US-ABBVIE-20K-163-3361045-00

PATIENT
  Sex: Female

DRUGS (3)
  1. SALAGEN [Concomitant]
     Active Substance: PILOCARPINE HYDROCHLORIDE
     Indication: DRY MOUTH
  2. HUMIRA [Suspect]
     Active Substance: ADALIMUMAB
     Indication: RHEUMATOID ARTHRITIS
     Route: 058
     Dates: start: 201907
  3. LOTRIMIN [Concomitant]
     Active Substance: CLOTRIMAZOLE
     Indication: SKIN FISSURES
     Dosage: CREAM

REACTIONS (25)
  - Osteoporosis [Unknown]
  - Middle insomnia [Unknown]
  - Anxiety [Unknown]
  - Pain [Unknown]
  - Rheumatoid arthritis [Unknown]
  - Skin ulcer [Unknown]
  - Ear discomfort [Unknown]
  - Back injury [Unknown]
  - Scoliosis [Unknown]
  - Hot flush [Unknown]
  - Myalgia [Unknown]
  - Intervertebral disc protrusion [Unknown]
  - Bronchitis [Unknown]
  - Sinusitis [Unknown]
  - Pleurisy [Unknown]
  - Insomnia [Unknown]
  - Sciatica [Unknown]
  - Hypersensitivity [Unknown]
  - Intervertebral disc degeneration [Unknown]
  - Dry mouth [Unknown]
  - Depression [Unknown]
  - Asthma [Unknown]
  - Pain in extremity [Unknown]
  - Panic attack [Unknown]
  - Pneumonitis [Unknown]

NARRATIVE: CASE EVENT DATE: 2019
